FAERS Safety Report 12099651 (Version 1)
Quarter: 2016Q1

REPORT INFORMATION
  Report Type: Spontaneous
  Country: US (occurrence: None)
  Receive Date: 20160219
  Receipt Date: 20160219
  Transmission Date: 20160526
  Serious: Yes (Life-Threatening, Hospitalization)
  Sender: FDA-Public Use
  Company Number: None

PATIENT
  Age: 69 Year
  Sex: Female
  Weight: 78.65 kg

DRUGS (20)
  1. CITALOPRAM [Concomitant]
     Active Substance: CITALOPRAM HYDROBROMIDE
  2. DONEPEZIL. [Concomitant]
     Active Substance: DONEPEZIL
  3. ALIGN [Concomitant]
     Active Substance: BIFIDOBACTERIUM LONGUM SUBSP. INFANTIS
  4. SIMVASTATIN. [Concomitant]
     Active Substance: SIMVASTATIN
  5. METFORMINE  HCL [Concomitant]
     Active Substance: METFORMIN HYDROCHLORIDE
  6. OTEZLA [Concomitant]
     Active Substance: APREMILAST
  7. TYLENOL EXTRA STRENGTH [Concomitant]
     Active Substance: ACETAMINOPHEN
  8. ENBREL [Suspect]
     Active Substance: ETANERCEPT
     Indication: PSORIASIS
     Dosage: 50 MG 1 SHOT A WEEK 1 TIME A WEEK BY INJECTION
     Dates: start: 2006, end: 20150318
  9. OMEGA-3 ACIDS [Concomitant]
     Active Substance: OMEGA-3 FATTY ACIDS
  10. D-3 VITAMIN [Concomitant]
  11. BUPROPION HCL [Concomitant]
     Active Substance: BUPROPION HYDROCHLORIDE
  12. LOSARTAN. [Concomitant]
     Active Substance: LOSARTAN
  13. VITAMIN D3 [Concomitant]
     Active Substance: CHOLECALCIFEROL
  14. TRAZADONE HCL [Concomitant]
     Active Substance: TRAZODONE HYDROCHLORIDE
  15. ENBREL [Suspect]
     Active Substance: ETANERCEPT
     Indication: PSORIATIC ARTHROPATHY
     Dosage: 50 MG 1 SHOT A WEEK 1 TIME A WEEK BY INJECTION
     Dates: start: 2006, end: 20150318
  16. FERROUS SULF [Concomitant]
  17. VITAMIN B12 [Concomitant]
     Active Substance: CYANOCOBALAMIN
  18. ALLEGRA ALLERGY [Concomitant]
     Active Substance: FEXOFENADINE HYDROCHLORIDE
  19. MIRTAZAPINE. [Concomitant]
     Active Substance: MIRTAZAPINE
  20. AMLODIPINE BESYLATE. [Concomitant]
     Active Substance: AMLODIPINE BESYLATE

REACTIONS (5)
  - Bronchitis [None]
  - Tendon rupture [None]
  - Sinusitis [None]
  - Clostridium difficile infection [None]
  - Infection [None]

NARRATIVE: CASE EVENT DATE: 20080407
